FAERS Safety Report 5451717-1 (Version None)
Quarter: 2007Q3

REPORT INFORMATION
  Report Type: 
  Country: None (occurrence: None)
  Receive Date: 20070913
  Receipt Date: 20070904
  Transmission Date: 20080115
  Serious: Yes (Other)
  Sender: FDA-Public Use
  Company Number: PL-ABBOTT-07P-129-0415762-00

PATIENT
  Sex: Female
  Weight: 62 kg

DRUGS (1)
  1. KLACID [Suspect]
     Indication: CHLAMYDIAL INFECTION
     Route: 048
     Dates: start: 20070402, end: 20070418

REACTIONS (4)
  - ABDOMINAL PAIN [None]
  - ASTHENIA [None]
  - DIARRHOEA [None]
  - DYSGEUSIA [None]
